FAERS Safety Report 17265450 (Version 1)
Quarter: 2020Q1

REPORT INFORMATION
  Report Type: Spontaneous
  Country: FR (occurrence: FR)
  Receive Date: 20200114
  Receipt Date: 20200114
  Transmission Date: 20200409
  Serious: Yes (Hospitalization)
  Sender: FDA-Public Use
  Company Number: FR-TEVA-2020-FR-1166916

PATIENT
  Age: 91 Year
  Sex: Female
  Weight: 80 kg

DRUGS (2)
  1. LEVOFLOXACINE [Suspect]
     Active Substance: LEVOFLOXACIN
     Indication: INFECTION
     Dosage: 500MG PER DAY
     Route: 048
     Dates: start: 20180806, end: 20180914
  2. AUGMENTIN [Suspect]
     Active Substance: AMOXICILLIN\CLAVULANATE POTASSIUM
     Indication: INFECTION
     Dosage: 3 GRAMS PER DAY
     Route: 048
     Dates: start: 20180806, end: 20180914

REACTIONS (1)
  - Acute generalised exanthematous pustulosis [Recovering/Resolving]

NARRATIVE: CASE EVENT DATE: 20180817
